FAERS Safety Report 17667748 (Version 3)
Quarter: 2020Q2

REPORT INFORMATION
  Report Type: Spontaneous
  Country: US (occurrence: US)
  Receive Date: 20200414
  Receipt Date: 20200526
  Transmission Date: 20200713
  Serious: No
  Sender: FDA-Public Use
  Company Number: US-JNJFOC-20200413682

PATIENT
  Age: 12 Year
  Sex: Female
  Weight: 47.67 kg

DRUGS (1)
  1. REMICADE [Suspect]
     Active Substance: INFLIXIMAB
     Indication: CROHN^S DISEASE
     Dosage: EVERY 6 TO 8 WEEKS
     Route: 042
     Dates: start: 2020

REACTIONS (1)
  - Drug specific antibody [Recovered/Resolved]

NARRATIVE: CASE EVENT DATE: 2020
